FAERS Safety Report 8182698-8 (Version None)
Quarter: 2012Q1

REPORT INFORMATION
  Report Type: 
  Country: None (occurrence: None)
  Receive Date: 20120301
  Receipt Date: 20120301
  Transmission Date: 20120608
  Serious: Yes (Other)
  Sender: FDA-Public Use
  Company Number: None

PATIENT
  Sex: Female
  Weight: 86.1834 kg

DRUGS (1)
  1. PROCARDIA XL [Suspect]
     Indication: DRUG THERAPY CHANGED
     Dosage: 60 MG 1X
     Dates: start: 20120113, end: 20120129

REACTIONS (4)
  - PRURITUS [None]
  - RASH [None]
  - SWELLING FACE [None]
  - OEDEMA PERIPHERAL [None]
